FAERS Safety Report 6762007-9 (Version None)
Quarter: 2010Q2

REPORT INFORMATION
  Report Type: 
  Country: None (occurrence: None)
  Receive Date: 20100609
  Receipt Date: 20100528
  Transmission Date: 20101027
  Serious: Yes (Other)
  Sender: FDA-Public Use
  Company Number: JP-SANOFI-AVENTIS-2010SA018461

PATIENT
  Age: 53 Year
  Sex: Female
  Weight: 56.5 kg

DRUGS (7)
  1. ENOXAPARIN SODIUM [Suspect]
     Indication: PULMONARY INFARCTION
     Route: 058
     Dates: start: 20100321, end: 20100325
  2. ENOXAPARIN SODIUM [Suspect]
     Indication: DEEP VEIN THROMBOSIS
     Route: 058
     Dates: start: 20100321, end: 20100325
  3. PANSPORIN [Concomitant]
     Indication: INFECTION PROPHYLAXIS
     Route: 042
     Dates: start: 20100319, end: 20100324
  4. MEIACT [Concomitant]
     Indication: INFECTION PROPHYLAXIS
     Route: 048
     Dates: start: 20100324, end: 20100331
  5. IRZAIM [Concomitant]
     Route: 048
     Dates: start: 20100320, end: 20100402
  6. LOXONIN [Concomitant]
     Route: 048
     Dates: start: 20100320, end: 20100402
  7. MUCOSTA [Concomitant]
     Indication: GASTRIC DISORDER
     Route: 048
     Dates: start: 20100320, end: 20100402

REACTIONS (4)
  - HEPATIC FUNCTION ABNORMAL [None]
  - MALAISE [None]
  - PLEURAL EFFUSION [None]
  - PYREXIA [None]
